FAERS Safety Report 7152562-1 (Version None)
Quarter: 2010Q4

REPORT INFORMATION
  Report Type: 
  Country: None (occurrence: None)
  Receive Date: 20101209
  Receipt Date: 20101209
  Transmission Date: 20110411
  Serious: No
  Sender: FDA-Public Use
  Company Number: None

PATIENT
  Age: 64 Year
  Sex: Female
  Weight: 39.9165 kg

DRUGS (1)
  1. ALENDRONATE SODIUM [Suspect]
     Indication: OSTEOPOROSIS
     Dosage: 1 WEEKLY
     Dates: start: 20100812, end: 20101208

REACTIONS (4)
  - AGEUSIA [None]
  - ANOSMIA [None]
  - PAROSMIA [None]
  - RHINORRHOEA [None]
